FAERS Safety Report 25987845 (Version 1)
Quarter: 2025Q4

REPORT INFORMATION
  Report Type: Spontaneous
  Country: CH (occurrence: CH)
  Receive Date: 20251103
  Receipt Date: 20251103
  Transmission Date: 20260118
  Serious: Yes (Hospitalization, Other)
  Sender: Haleon PLC
  Company Number: None

PATIENT
  Age: 20 Year
  Sex: Female
  Weight: 95 kg

DRUGS (9)
  1. VOLTAREN [Suspect]
     Active Substance: DICLOFENAC SODIUM
     Indication: Product used for unknown indication
     Dosage: 50 UG, Q12H
     Route: 048
     Dates: start: 20250905, end: 20250906
  2. NOVALGIN (METAMIZOLE SODIUM) [Suspect]
     Active Substance: METAMIZOLE SODIUM
     Indication: Postoperative analgesia
     Dosage: 500 MG, Q6H
     Route: 048
     Dates: start: 20250905, end: 20250907
  3. PANTOPRAZOLE SODIUM [Suspect]
     Active Substance: PANTOPRAZOLE SODIUM
     Indication: Product used for unknown indication
     Dosage: 40 MG, Q24H
     Route: 048
     Dates: start: 20250905, end: 20250906
  4. ONDANSETRON [Concomitant]
     Active Substance: ONDANSETRON
     Indication: Product used for unknown indication
     Dosage: 4 MG, QD
     Route: 042
     Dates: start: 20250905, end: 20250905
  5. Paspertin [Concomitant]
     Indication: Product used for unknown indication
     Dosage: 30 DRP, QD
     Route: 048
     Dates: start: 20250905, end: 20250905
  6. DAFALGAN [Suspect]
     Active Substance: ACETAMINOPHEN
     Indication: Postoperative analgesia
     Dosage: 1 G, Q6H
     Route: 048
     Dates: start: 20250905, end: 20250907
  7. DEXAMETHASONE [Concomitant]
     Active Substance: DEXAMETHASONE
     Indication: Product used for unknown indication
     Dosage: 8 MG, QD
     Route: 042
     Dates: start: 20250905, end: 20250905
  8. MORPHINE HYDROCHLORIDE [Concomitant]
     Active Substance: MORPHINE HYDROCHLORIDE
     Indication: Product used for unknown indication
     Dosage: 2 MG, Q2H
     Route: 042
     Dates: start: 20250905, end: 20250906
  9. IBUPROFEN [Suspect]
     Active Substance: IBUPROFEN
     Indication: Product used for unknown indication
     Dosage: 400 MG, QD
     Route: 048
     Dates: start: 20250906, end: 20250906

REACTIONS (1)
  - Agranulocytosis [Recovered/Resolved]

NARRATIVE: CASE EVENT DATE: 20250907
